FAERS Safety Report 12456430 (Version 3)
Quarter: 2016Q4

REPORT INFORMATION
  Report Type: Report from Study
  Country: NL (occurrence: NL)
  Receive Date: 20160610
  Receipt Date: 20161114
  Transmission Date: 20170207
  Serious: Yes (Death, Life-Threatening, Hospitalization, Disabling)
  Sender: FDA-Public Use
  Company Number: NL-CELGENEUS-NLD-2016057158

PATIENT
  Age: 51 Year
  Sex: Male

DRUGS (5)
  1. ABRAXANE [Suspect]
     Active Substance: PACLITAXEL
     Route: 048
  2. ABRAXANE [Suspect]
     Active Substance: PACLITAXEL
     Route: 041
  3. ABRAXANE [Suspect]
     Active Substance: PACLITAXEL
     Indication: OESOPHAGOGASTRIC FUNDOPLASTY
     Route: 041
  4. CAPECITABINE. [Suspect]
     Active Substance: CAPECITABINE
     Indication: OESOPHAGOGASTRIC FUNDOPLASTY
     Dosage: 4.6429 MILLIGRAM/SQ. METER
     Route: 048
  5. OXALIPLATIN. [Suspect]
     Active Substance: OXALIPLATIN
     Indication: OESOPHAGOGASTRIC FUNDOPLASTY
     Route: 041

REACTIONS (2)
  - Dehydration [Recovered/Resolved]
  - Chylothorax [Fatal]

NARRATIVE: CASE EVENT DATE: 20160522
